FAERS Safety Report 20369065 (Version 1)
Quarter: 2022Q1

REPORT INFORMATION
  Report Type: Spontaneous
  Country: IT (occurrence: IT)
  Receive Date: 20220124
  Receipt Date: 20220124
  Transmission Date: 20220423
  Serious: Yes (Other)
  Sender: FDA-Public Use
  Company Number: IT-MYLANLABS-2022M1004402

PATIENT
  Age: 53 Year
  Sex: Female

DRUGS (2)
  1. IBUPROFEN [Suspect]
     Active Substance: IBUPROFEN
     Indication: Back pain
     Dosage: 300 MILLIGRAM
  2. ACETAMINOPHEN\CAFFEINE\CHLORPHENIRAMINE MALEATE\ETHENZAMIDE\NOSCAPINE\ [Concomitant]
     Active Substance: ACETAMINOPHEN\CAFFEINE\CHLORPHENIRAMINE MALEATE\ETHENZAMIDE\NOSCAPINE\RIBOFLAVIN\SULFOGAIACOL
     Indication: Blood cholesterol increased

REACTIONS (3)
  - Dysentery [Unknown]
  - Dyspepsia [Unknown]
  - Intentional product misuse [Unknown]
